FAERS Safety Report 5218904-9 (Version None)
Quarter: 2007Q1

REPORT INFORMATION
  Report Type: 
  Country: None (occurrence: None)
  Receive Date: 20070125
  Receipt Date: 20070116
  Transmission Date: 20070707
  Serious: Yes (Hospitalization)
  Sender: FDA-Public Use
  Company Number: GB-ABBOTT-07P-167-0356171-00

PATIENT
  Sex: Male
  Weight: 86 kg

DRUGS (10)
  1. HUMIRA [Suspect]
     Indication: RHEUMATOID ARTHRITIS
     Route: 058
     Dates: start: 20060316
  2. PREDNISOLONE [Concomitant]
     Indication: DRUG USE FOR UNKNOWN INDICATION
     Dates: start: 20060401
  3. CARBAZOCHROME [Concomitant]
     Indication: DRUG USE FOR UNKNOWN INDICATION
     Dates: start: 20060401
  4. AMLODIPINE [Concomitant]
     Indication: DRUG USE FOR UNKNOWN INDICATION
     Dates: start: 20060401
  5. ASIPRIN [Concomitant]
     Indication: DRUG USE FOR UNKNOWN INDICATION
     Dates: start: 20060401
  6. CANDESARDAN [Concomitant]
     Indication: DRUG USE FOR UNKNOWN INDICATION
     Dates: start: 20060401
  7. DICLOFENAC SODIUM [Concomitant]
     Indication: DRUG USE FOR UNKNOWN INDICATION
     Dates: start: 20060401
  8. OMEPRAZOLE [Concomitant]
     Indication: DRUG USE FOR UNKNOWN INDICATION
     Dates: start: 20060401
  9. SIMVASTATIN [Concomitant]
     Indication: DRUG USE FOR UNKNOWN INDICATION
     Dates: start: 20060401
  10. TOLTERODINE [Concomitant]
     Indication: DRUG USE FOR UNKNOWN INDICATION
     Dates: start: 20060401

REACTIONS (1)
  - RENAL FAILURE ACUTE [None]
